FAERS Safety Report 12578920 (Version 1)
Quarter: 2016Q3

REPORT INFORMATION
  Report Type: Spontaneous
  Country: None (occurrence: US)
  Receive Date: 20160721
  Receipt Date: 20160721
  Transmission Date: 20161109
  Serious: Yes (Hospitalization)
  Sender: FDA-Public Use
  Company Number: US-RARE DISEASE THERAPEUTICS, INC.-1055330

PATIENT
  Age: 15 Year
  Sex: Female
  Weight: 61.23 kg

DRUGS (10)
  1. VITAMIN D3 [Concomitant]
     Active Substance: CHOLECALCIFEROL
  2. DOCUSATE SODIUM. [Concomitant]
     Active Substance: DOCUSATE SODIUM
  3. DIVALPROEX SODIUM. [Concomitant]
     Active Substance: DIVALPROEX SODIUM
  4. MULTIVITAMIN [Concomitant]
     Active Substance: VITAMINS
  5. LAMOTRIGINE. [Concomitant]
     Active Substance: LAMOTRIGINE
  6. CYSTADANE [Suspect]
     Active Substance: BETAINE
     Indication: HOMOCYSTINURIA
     Route: 048
     Dates: start: 20141014
  7. SEROQUEL [Concomitant]
     Active Substance: QUETIAPINE FUMARATE
  8. VITAMIN B12 [Concomitant]
     Active Substance: CYANOCOBALAMIN
  9. PROPRANOLOL [Concomitant]
     Active Substance: PROPRANOLOL\PROPRANOLOL HYDROCHLORIDE
  10. VITAMIN B-6 [Concomitant]
     Active Substance: PYRIDOXINE

REACTIONS (2)
  - Underdose [None]
  - Spinal operation [Recovered/Resolved]

NARRATIVE: CASE EVENT DATE: 20160616
